FAERS Safety Report 9270814 (Version 3)
Quarter: 2013Q2

REPORT INFORMATION
  Report Type: Spontaneous
  Country: JP (occurrence: JP)
  Receive Date: 20130503
  Receipt Date: 20130628
  Transmission Date: 20140414
  Serious: Yes (Hospitalization, Other)
  Sender: FDA-Public Use
  Company Number: JP-ASTRAZENECA-2013SE30207

PATIENT
  Age: 75 Year
  Sex: Female
  Weight: 34.9 kg

DRUGS (11)
  1. QUETIAPINE FUMARATE [Suspect]
     Indication: DEPRESSION
     Route: 048
     Dates: start: 20110131, end: 20110131
  2. QUETIAPINE FUMARATE [Suspect]
     Indication: DEPRESSION
     Route: 048
     Dates: start: 20110201, end: 20110213
  3. QUETIAPINE FUMARATE [Suspect]
     Indication: DEPRESSION
     Route: 048
     Dates: start: 20110214, end: 20110216
  4. QUETIAPINE FUMARATE [Suspect]
     Indication: DEPRESSION
     Route: 048
     Dates: start: 20110217, end: 20110223
  5. QUETIAPINE FUMARATE [Suspect]
     Indication: DEPRESSION
     Route: 048
     Dates: start: 20110224, end: 2011
  6. QUETIAPINE FUMARATE [Suspect]
     Indication: DEPRESSION
     Route: 048
     Dates: start: 2011, end: 20110421
  7. CYMBALTA [Concomitant]
     Dates: start: 20101122, end: 20110421
  8. MUCOSTA [Concomitant]
     Dates: start: 20101027, end: 20110421
  9. MAGMITT [Concomitant]
     Dates: start: 20101028, end: 20110421
  10. PURSENNID [Concomitant]
     Dates: start: 20101206, end: 20110421
  11. TETRAMIDE [Concomitant]
     Dates: start: 20110124, end: 20110421

REACTIONS (3)
  - Drug-induced liver injury [Recovering/Resolving]
  - Drug hypersensitivity [Unknown]
  - Off label use [Unknown]
